FAERS Safety Report 24574869 (Version 1)
Quarter: 2024Q4

REPORT INFORMATION
  Report Type: Spontaneous
  Country: ZA (occurrence: ZA)
  Receive Date: 20241104
  Receipt Date: 20241104
  Transmission Date: 20250115
  Serious: Yes (Other)
  Sender: SANOFI AVENTIS
  Company Number: ZA-SA-2024SA312914

PATIENT
  Sex: Female

DRUGS (3)
  1. LEFLUNOMIDE [Suspect]
     Active Substance: LEFLUNOMIDE
     Dosage: 20 MG, QD
     Route: 065
  2. METHOTREXATE [Suspect]
     Active Substance: METHOTREXATE
     Dosage: 20 MG, QW
     Route: 065
  3. SULFASALAZINE [Suspect]
     Active Substance: SULFASALAZINE
     Dosage: 1 MG, TID (1MG, 3X/DAY)
     Route: 065

REACTIONS (19)
  - Basal cell carcinoma [Unknown]
  - Alanine aminotransferase increased [Unknown]
  - Blood chloride increased [Unknown]
  - Blood cholesterol increased [Unknown]
  - Carbon dioxide decreased [Unknown]
  - Blood bilirubin increased [Unknown]
  - Monocyte percentage increased [Unknown]
  - Eosinophil count increased [Unknown]
  - Aspartate aminotransferase increased [Unknown]
  - C-reactive protein increased [Unknown]
  - Low density lipoprotein increased [Unknown]
  - Haemoglobin increased [Unknown]
  - Lymphocyte count increased [Unknown]
  - Red cell distribution width increased [Unknown]
  - White blood cell count increased [Unknown]
  - Neutrophil count increased [Unknown]
  - Loss of personal independence in daily activities [Unknown]
  - Glomerular filtration rate decreased [Unknown]
  - Treatment failure [Unknown]
